FAERS Safety Report 13795349 (Version 1)
Quarter: 2017Q3

REPORT INFORMATION
  Report Type: Report from Study
  Country: US (occurrence: US)
  Receive Date: 20170726
  Receipt Date: 20170726
  Transmission Date: 20171127
  Serious: Yes (Other)
  Sender: FDA-Public Use
  Company Number: US-IPSEN BIOPHARMACEUTICALS, INC.-2017-04652

PATIENT
  Sex: Female
  Weight: 49.5 kg

DRUGS (1)
  1. SOMATULINE [Suspect]
     Active Substance: LANREOTIDE ACETATE
     Indication: NEUROENDOCRINE CARCINOMA
     Dosage: 60 MG
     Route: 058
     Dates: start: 20170117

REACTIONS (5)
  - Abdominal pain [Unknown]
  - Appetite disorder [Unknown]
  - Metastases to lung [Unknown]
  - Diarrhoea [Unknown]
  - Metastases to liver [Unknown]

NARRATIVE: CASE EVENT DATE: 2017
